FAERS Safety Report 14970955 (Version 1)
Quarter: 2018Q2

REPORT INFORMATION
  Report Type: Spontaneous
  Country: US (occurrence: US)
  Receive Date: 20180514
  Receipt Date: 20180514
  Transmission Date: 20180711
  Serious: Yes (Other)
  Sender: FDA-Public Use
  Company Number: None

PATIENT
  Age: 72 Year
  Sex: Male
  Weight: 81 kg

DRUGS (21)
  1. SINGULAIR [Concomitant]
     Active Substance: MONTELUKAST SODIUM
  2. BLACK CURRANT OIL [Concomitant]
  3. ADVAIR DISKUS [Concomitant]
     Active Substance: FLUTICASONE PROPIONATE\SALMETEROL XINAFOATE
  4. TAMSULOSIN [Concomitant]
     Active Substance: TAMSULOSIN
  5. IBUPROFEN. [Concomitant]
     Active Substance: IBUPROFEN
  6. FINASTERIDE. [Concomitant]
     Active Substance: FINASTERIDE
  7. ROSUVASTATIN. [Concomitant]
     Active Substance: ROSUVASTATIN
  8. PYCNOGENOL W/BIOFLAVONOIDS [Concomitant]
  9. DOXYCYCLINE HYCLATE. [Concomitant]
     Active Substance: DOXYCYCLINE HYCLATE
  10. ZITHROMAX [Concomitant]
     Active Substance: AZITHROMYCIN DIHYDRATE
  11. OMEGA 3 [Concomitant]
     Active Substance: OMEGA-3 FATTY ACIDS
  12. PROAIR HFA [Concomitant]
     Active Substance: ALBUTEROL SULFATE
  13. MUSK?? [Concomitant]
  14. VITAMIN B-COMPLEX [Concomitant]
     Active Substance: DEXPANTHENOL\NIACINAMIDE\PYRIDOXINE HYDROCHLORIDE\RIBOFLAVIN 5^-PHOSPHATE SODIUM\THIAMINE HYDROCHLORIDE
  15. ASPIRIN. [Concomitant]
     Active Substance: ASPIRIN
  16. LISINOPRIL. [Concomitant]
     Active Substance: LISINOPRIL
  17. VITAMIN D3 [Concomitant]
     Active Substance: CHOLECALCIFEROL
  18. LEVOFLOXACIN 500 MG TABLET [Suspect]
     Active Substance: LEVOFLOXACIN
     Indication: ASTHMA
     Dosage: ?          QUANTITY:10 TABLET(S);?
     Route: 048
     Dates: start: 20180430, end: 20180508
  19. MELOXICAN [Concomitant]
     Active Substance: MELOXICAM
  20. CENTRUM AGE 50 PROBIOTICS BLEND [Concomitant]
  21. VITAMIN C [Concomitant]
     Active Substance: ASCORBIC ACID

REACTIONS (6)
  - Stress [None]
  - Muscle spasms [None]
  - Gait disturbance [None]
  - Peripheral swelling [None]
  - Dyspnoea [None]
  - Pain in extremity [None]

NARRATIVE: CASE EVENT DATE: 20180508
